FAERS Safety Report 12784631 (Version 1)
Quarter: 2016Q3

REPORT INFORMATION
  Report Type: Spontaneous
  Country: MX (occurrence: MX)
  Receive Date: 20160927
  Receipt Date: 20160927
  Transmission Date: 20161109
  Serious: Yes (Other)
  Sender: FDA-Public Use
  Company Number: MX-JNJFOC-20160924326

PATIENT
  Age: 49 Year
  Sex: Male

DRUGS (2)
  1. VENALOT [Concomitant]
     Active Substance: COUMARIN\TROXERUTIN
     Indication: VENOUS THROMBOSIS
     Route: 048
     Dates: start: 20160822
  2. XARELTO [Suspect]
     Active Substance: RIVAROXABAN
     Indication: VENOUS THROMBOSIS
     Route: 048
     Dates: start: 20140704, end: 20160602

REACTIONS (2)
  - Nephrolithiasis [Unknown]
  - Haematuria [Recovered/Resolved]

NARRATIVE: CASE EVENT DATE: 20160823
